FAERS Safety Report 16077777 (Version 1)
Quarter: 2019Q1

REPORT INFORMATION
  Report Type: Report from Study
  Country: US (occurrence: US)
  Receive Date: 20190315
  Receipt Date: 20190315
  Transmission Date: 20190418
  Serious: Yes (Other)
  Sender: FDA-Public Use
  Company Number: US-JNJFOC-20181216678

PATIENT
  Sex: Male

DRUGS (2)
  1. IMBRUVICA [Suspect]
     Active Substance: IBRUTINIB
     Indication: CHRONIC LYMPHOCYTIC LEUKAEMIA
     Dosage: 420 MG, QD
     Route: 048
     Dates: start: 20181120
  2. IMBRUVICA [Suspect]
     Active Substance: IBRUTINIB
     Indication: CHRONIC LYMPHOCYTIC LEUKAEMIA
     Route: 048
     Dates: start: 20190209

REACTIONS (4)
  - Alopecia [Unknown]
  - Muscle spasms [Not Recovered/Not Resolved]
  - Haemoptysis [Unknown]
  - Syncope [Unknown]
